FAERS Safety Report 21762882 (Version 1)
Quarter: 2022Q4

REPORT INFORMATION
  Report Type: Spontaneous
  Country: US (occurrence: None)
  Receive Date: 20221220
  Receipt Date: 20221220
  Transmission Date: 20230113
  Serious: Yes (Hospitalization)
  Sender: FDA-Public Use
  Company Number: None

PATIENT
  Age: 76 Year
  Sex: Male
  Weight: 77 kg

DRUGS (1)
  1. EMPAGLIFLOZIN [Suspect]
     Active Substance: EMPAGLIFLOZIN
     Indication: Diabetes mellitus
     Dates: start: 20220124, end: 20220316

REACTIONS (10)
  - Polydipsia [None]
  - Polyuria [None]
  - Blood glucose increased [None]
  - Diabetic ketoacidosis [None]
  - Blood chloride decreased [None]
  - Carbon dioxide decreased [None]
  - Anion gap increased [None]
  - Blood urea increased [None]
  - Blood creatinine increased [None]
  - Acidosis [None]

NARRATIVE: CASE EVENT DATE: 20220301
